FAERS Safety Report 15414736 (Version 1)
Quarter: 2018Q3

REPORT INFORMATION
  Report Type: Spontaneous
  Country: US (occurrence: US)
  Receive Date: 20180921
  Receipt Date: 20180921
  Transmission Date: 20181010
  Serious: No
  Sender: FDA-Public Use
  Company Number: US-BAYER-2018-176302

PATIENT
  Age: 52 Year
  Sex: Female

DRUGS (1)
  1. CLIMARA PRO [Suspect]
     Active Substance: ESTRADIOL\LEVONORGESTREL
     Indication: MENOPAUSE
     Dosage: UNK
     Route: 062
     Dates: start: 201808

REACTIONS (5)
  - Application site laceration [None]
  - Product quality issue [None]
  - Product adhesion issue [None]
  - Application site rash [Not Recovered/Not Resolved]
  - Application site irritation [Not Recovered/Not Resolved]

NARRATIVE: CASE EVENT DATE: 20180826
